FAERS Safety Report 9176605 (Version 1)
Quarter: 2013Q1

REPORT INFORMATION
  Report Type: Spontaneous
  Country: US (occurrence: None)
  Receive Date: 20130320
  Receipt Date: 20130320
  Transmission Date: 20140127
  Serious: No
  Sender: FDA-Public Use
  Company Number: None

PATIENT
  Sex: Female
  Weight: 54.8 kg

DRUGS (4)
  1. OXALIPLATIN (ELOXATIN) [Suspect]
  2. 5-FLUOROURACIL (5-FU) [Suspect]
  3. BEVACIZUMAB (RHUMAB VEGF) (704865) [Suspect]
  4. LEUCOVORIN CALCIUM [Suspect]

REACTIONS (2)
  - Neuropathy peripheral [None]
  - Deep vein thrombosis [None]
